FAERS Safety Report 16413954 (Version 1)
Quarter: 2019Q2

REPORT INFORMATION
  Report Type: Spontaneous
  Country: US (occurrence: US)
  Receive Date: 20190503
  Receipt Date: 20190503
  Transmission Date: 20190711
  Serious: No
  Sender: FDA-Public Use
  Company Number: None

PATIENT
  Sex: Male

DRUGS (13)
  1. OMEGA-3 ACIDS [Concomitant]
     Active Substance: OMEGA-3 FATTY ACIDS
  2. BUSPIRONE [Concomitant]
     Active Substance: BUSPIRONE HYDROCHLORIDE
  3. LYRICA [Concomitant]
     Active Substance: PREGABALIN
  4. VENTOLIN [Concomitant]
     Active Substance: ALBUTEROL SULFATE
  5. ENBREL [Suspect]
     Active Substance: ETANERCEPT
     Indication: PSORIASIS
     Route: 058
     Dates: start: 20190214
  6. ZOLPIDEM [Concomitant]
     Active Substance: ZOLPIDEM\ZOLPIDEM TARTRATE
  7. ATORVASTATIN [Concomitant]
     Active Substance: ATORVASTATIN
  8. CELCOXIB [Concomitant]
     Active Substance: CELECOXIB
  9. ROPINIROLE. [Concomitant]
     Active Substance: ROPINIROLE
  10. SULFAZALAZINE [Concomitant]
     Active Substance: SULFASALAZINE
  11. VALSARTAN. [Concomitant]
     Active Substance: VALSARTAN
  12. PROAIR HFA [Concomitant]
     Active Substance: ALBUTEROL SULFATE
  13. METFORMIN [Concomitant]
     Active Substance: METFORMIN HYDROCHLORIDE

REACTIONS (2)
  - Knee operation [None]
  - Therapy cessation [None]
